FAERS Safety Report 23122837 (Version 1)
Quarter: 2023Q4

REPORT INFORMATION
  Report Type: Spontaneous
  Country: US (occurrence: US)
  Receive Date: 20231030
  Receipt Date: 20231030
  Transmission Date: 20240109
  Serious: No
  Sender: FDA-Public Use
  Company Number: US-AJANTA-2023AJA00154

PATIENT
  Sex: Female

DRUGS (1)
  1. ZOLMITRIPTAN [Suspect]
     Active Substance: ZOLMITRIPTAN
     Indication: Migraine
     Dates: start: 2023

REACTIONS (2)
  - Product taste abnormal [Unknown]
  - Product packaging difficult to open [Unknown]

NARRATIVE: CASE EVENT DATE: 20230101
